FAERS Safety Report 7802346-3 (Version None)
Quarter: 2011Q4

REPORT INFORMATION
  Report Type: 
  Country: None (occurrence: None)
  Receive Date: 20111007
  Receipt Date: 20110929
  Transmission Date: 20120403
  Serious: Yes (Other)
  Sender: FDA-Public Use
  Company Number: JP-B.I. PHARMACEUTICALS,INC./RIDGEFIELD-2011-BP-21563NB

PATIENT
  Age: 90 Year
  Sex: Male
  Weight: 83 kg

DRUGS (3)
  1. PRADAXA [Suspect]
     Indication: ATRIAL FIBRILLATION
     Dosage: 220 MG
     Route: 048
     Dates: start: 20110818, end: 20110825
  2. BISOPROLOL FUMARATE [Concomitant]
     Dosage: 2.5 MG
     Dates: start: 20110816, end: 20110825
  3. ATELEC [Concomitant]
     Dosage: 10 MG
     Dates: start: 20110816, end: 20110825

REACTIONS (4)
  - BLOOD LACTATE DEHYDROGENASE INCREASED [None]
  - ALANINE AMINOTRANSFERASE INCREASED [None]
  - BLOOD CREATININE INCREASED [None]
  - ASPARTATE AMINOTRANSFERASE INCREASED [None]
